FAERS Safety Report 11755604 (Version 1)
Quarter: 2015Q4

REPORT INFORMATION
  Report Type: Spontaneous
  Country: US (occurrence: None)
  Receive Date: 20151118
  Receipt Date: 20151118
  Transmission Date: 20160304
  Serious: No
  Sender: FDA-Public Use
  Company Number: None

PATIENT
  Age: 58 Year
  Sex: Female
  Weight: 103.42 kg

DRUGS (7)
  1. LEVOFLOXACIN 500 MG ZYDUS [Suspect]
     Active Substance: LEVOFLOXACIN
     Indication: BRONCHITIS
     Route: 048
     Dates: start: 20151114, end: 20151116
  2. PRILOSEC [Concomitant]
     Active Substance: OMEPRAZOLE MAGNESIUM
  3. ADVIL [Concomitant]
     Active Substance: IBUPROFEN
  4. OMEGA 3-6-9 FISH OIL [Concomitant]
  5. FLUTICASON PROPIONATE [Concomitant]
     Active Substance: FLUTICASONE PROPIONATE
  6. MULTIVITAMIN [Concomitant]
     Active Substance: VITAMINS
  7. ASPIRIN. [Concomitant]
     Active Substance: ASPIRIN

REACTIONS (5)
  - Hallucination, visual [None]
  - Insomnia [None]
  - Poor quality sleep [None]
  - Cough [None]
  - Hallucination [None]

NARRATIVE: CASE EVENT DATE: 20151117
